FAERS Safety Report 13956230 (Version 1)
Quarter: 2017Q3

REPORT INFORMATION
  Report Type: Spontaneous
  Country: US (occurrence: US)
  Receive Date: 20170911
  Receipt Date: 20170911
  Transmission Date: 20171128
  Serious: Yes (Other)
  Sender: FDA-Public Use
  Company Number: US-BRISTOL-MYERS SQUIBB COMPANY-BMS-2017-081357

PATIENT
  Age: 57 Year
  Sex: Male

DRUGS (1)
  1. NIVOLUMAB [Suspect]
     Active Substance: NIVOLUMAB
     Indication: NON-RENAL CELL CARCINOMA OF KIDNEY
     Dosage: 3 MG/KG, Q3WK
     Route: 065
     Dates: start: 20160909

REACTIONS (2)
  - Malignant neoplasm progression [Unknown]
  - Off label use [Unknown]
